FAERS Safety Report 21618241 (Version 1)
Quarter: 2022Q4

REPORT INFORMATION
  Report Type: Spontaneous
  Country: US (occurrence: US)
  Receive Date: 20221119
  Receipt Date: 20221119
  Transmission Date: 20230113
  Serious: No
  Sender: FDA-Public Use
  Company Number: US-UNITED THERAPEUTICS-UNT-2022-027876

PATIENT
  Sex: Female
  Weight: 63.492 kg

DRUGS (2)
  1. REMODULIN [Suspect]
     Active Substance: TREPROSTINIL
     Indication: Pulmonary arterial hypertension
     Dosage: UNK, CONTINUING
     Route: 058
     Dates: start: 20220307
  2. REMODULIN [Suspect]
     Active Substance: TREPROSTINIL
     Dosage: 0.0375 ?G/KG, CONTINUING
     Route: 058
     Dates: start: 2022

REACTIONS (4)
  - Product leakage [Unknown]
  - Physical product label issue [Unknown]
  - Headache [Unknown]
  - Dizziness [Unknown]

NARRATIVE: CASE EVENT DATE: 20220101
